FAERS Safety Report 8925041 (Version 3)
Quarter: 2013Q1

REPORT INFORMATION
  Report Type: Spontaneous
  Country: JP (occurrence: None)
  Receive Date: 20121116
  Receipt Date: 20121220
  Transmission Date: 20140127
  Serious: Yes (Other)
  Sender: FDA-Public Use
  Company Number: DSJ-2012-20782

PATIENT
  Age: 45 Year
  Sex: Male
  Weight: 69.7 kg

DRUGS (13)
  1. OLMETEC [Suspect]
     Indication: HYPERTENSION
     Route: 048
     Dates: start: 20120214
  2. LOXOPROFEN [Suspect]
     Indication: PAIN
     Route: 048
     Dates: start: 20120814
  3. CHAMPIX [Suspect]
     Indication: SMOKING CESSATION THERAPY
     Route: 048
     Dates: start: 20120911, end: 20120913
  4. AMLODIPINE [Suspect]
     Indication: HYPERTENSION
     Route: 048
     Dates: start: 20120420
  5. LUPRAC [Suspect]
     Indication: OEDEMA
     Dosage: (4 MG,2 IN 1 D)
     Route: 048
     Dates: start: 20120725
  6. LENDORMIN [Suspect]
     Indication: INSOMNIA
     Route: 048
     Dates: start: 20120725
  7. CALONAL [Suspect]
     Indication: PYREXIA
     Route: 048
     Dates: start: 20120718
  8. WARFARIN [Suspect]
     Indication: THROMBOSIS PROPHYLAXIS
     Route: 048
     Dates: start: 20120816, end: 20120830
  9. FLUITRAN (TRICHLOMETHIAZIDE) (TRICHLORMETHIAZIDE) [Concomitant]
  10. ALDACTONE (SPIRONOLACTONE) (SPIRONOLACTONE) (SPIRONOLACTONE) [Concomitant]
  11. UBIRON (URSODEOXYCHOLIC ACID) (UROSDEOXYCHOLIC ACID) [Concomitant]
  12. ASTOMIN (DIMEORFAN PHOSPHATE) (DIMEMORAN PHOSPHATE) [Concomitant]
  13. HUMALOG MIX (INSULIN LISPRO) (INSULIN LISPRO) [Concomitant]

REACTIONS (20)
  - Jaundice [None]
  - Blood bilirubin increased [None]
  - Insomnia [None]
  - Nightmare [None]
  - Nephrotic syndrome [None]
  - Oedema [None]
  - Hepatic enzyme increased [None]
  - Carbohydrate antigen 19-9 increased [None]
  - Laboratory test abnormal [None]
  - Chills [None]
  - Pyrexia [None]
  - Dialysis [None]
  - Sarcoidosis [None]
  - Lymph node tuberculosis [None]
  - Acute hepatic failure [None]
  - Diarrhoea haemorrhagic [None]
  - Duodenal ulcer [None]
  - Pain in extremity [None]
  - Renal failure chronic [None]
  - Polydipsia [None]
